FAERS Safety Report 8027918-5 (Version None)
Quarter: 2012Q1

REPORT INFORMATION
  Report Type: 
  Country: None (occurrence: None)
  Receive Date: 20120106
  Receipt Date: 20120104
  Transmission Date: 20120608
  Serious: No
  Sender: FDA-Public Use
  Company Number: US-JNJFOC-20120101540

PATIENT
  Sex: Female

DRUGS (8)
  1. FENTANYL-100 [Suspect]
     Indication: ROTATOR CUFF SYNDROME
     Route: 062
  2. FENTANYL-100 [Suspect]
     Indication: LIGAMENT INJURY
     Route: 062
  3. FENTANYL [Suspect]
     Indication: LIGAMENT INJURY
     Route: 062
     Dates: end: 20111201
  4. FENTANYL-100 [Suspect]
     Route: 062
     Dates: start: 20111201
  5. FENTANYL-100 [Suspect]
     Route: 062
     Dates: start: 20111201
  6. FENTANYL [Suspect]
     Indication: ROTATOR CUFF SYNDROME
     Route: 062
     Dates: end: 20111201
  7. HYDROCODONE [Concomitant]
     Indication: LIGAMENT INJURY
     Route: 048
  8. HYDROCODONE [Concomitant]
     Indication: ROTATOR CUFF SYNDROME
     Route: 048

REACTIONS (4)
  - DRUG INEFFECTIVE [None]
  - DRUG ADMINISTERED AT INAPPROPRIATE SITE [None]
  - PRODUCT QUALITY ISSUE [None]
  - WRONG TECHNIQUE IN DRUG USAGE PROCESS [None]
